FAERS Safety Report 9399744 (Version 1)
Quarter: 2013Q3

REPORT INFORMATION
  Report Type: Spontaneous
  Country: GB (occurrence: None)
  Receive Date: 20130710
  Receipt Date: 20130710
  Transmission Date: 20140515
  Serious: Yes (Other)
  Sender: FDA-Public Use
  Company Number: SYM-2013-05342

PATIENT
  Age: 8 Month
  Sex: Female

DRUGS (1)
  1. TIMOPTOL-LA [Suspect]
     Indication: HAEMANGIOMA
     Dates: start: 20130607, end: 20130614

REACTIONS (2)
  - Sleep terror [None]
  - Lower respiratory tract infection [None]
